FAERS Safety Report 15363880 (Version 1)
Quarter: 2018Q3

REPORT INFORMATION
  Report Type: Spontaneous
  Country: US (occurrence: US)
  Receive Date: 20180831
  Receipt Date: 20180831
  Transmission Date: 20181010
  Serious: Yes (Life-Threatening)
  Sender: FDA-Public Use
  Company Number: None

PATIENT
  Age: 75 Year
  Sex: Male
  Weight: 115.7 kg

DRUGS (1)
  1. CEFTRIAXONE. [Suspect]
     Active Substance: CEFTRIAXONE
     Indication: URINARY TRACT INFECTION
     Route: 042
     Dates: start: 20180607, end: 20180608

REACTIONS (6)
  - Lip swelling [None]
  - Respiratory distress [None]
  - Pruritus [None]
  - Wheezing [None]
  - Anaphylactic reaction [None]
  - Dyspnoea [None]

NARRATIVE: CASE EVENT DATE: 20180608
